FAERS Safety Report 6715903-2 (Version None)
Quarter: 2010Q2

REPORT INFORMATION
  Report Type: 
  Country: None (occurrence: None)
  Receive Date: 20100507
  Receipt Date: 20100427
  Transmission Date: 20101027
  Serious: Yes (Hospitalization, Other)
  Sender: FDA-Public Use
  Company Number: PHHY2010CA09916

PATIENT
  Sex: Male

DRUGS (13)
  1. SANDOSTATIN LAR [Suspect]
     Indication: ACROMEGALY
     Dosage: 20 MG EVERY 4 WEEKS
     Route: 030
     Dates: start: 19850101
  2. SANDOSTATIN LAR [Suspect]
     Dosage: 20 MG EVERY 4 WEEKS
     Route: 030
     Dates: start: 20090805
  3. NORVASC [Concomitant]
     Dosage: 5 MG, QD
     Route: 048
  4. VASOTEC [Concomitant]
     Dosage: 20 MG, BID
     Route: 048
  5. LIPITOR [Concomitant]
     Dosage: 40 MG, QD
     Route: 048
  6. LEVOTHYROXINE SODIUM [Concomitant]
     Dosage: 100 UG, QD
     Route: 048
  7. SULFASALAZINE [Concomitant]
     Dosage: S00 MG 6X DAILY
  8. PREDNISONE [Concomitant]
     Dosage: 5 MG, BID
     Route: 048
  9. HUMULIN R [Concomitant]
  10. HUMALOG [Concomitant]
  11. BUDESONIDE [Concomitant]
  12. ENALAPRIL MALEATE [Concomitant]
  13. ANDROGEL [Concomitant]

REACTIONS (8)
  - BLOOD GLUCOSE DECREASED [None]
  - BRAIN TUMOUR OPERATION [None]
  - DIZZINESS [None]
  - GLIOBLASTOMA [None]
  - HEADACHE [None]
  - MALAISE [None]
  - PALLOR [None]
  - VISION BLURRED [None]
